FAERS Safety Report 6016258-1 (Version None)
Quarter: 2008Q4

REPORT INFORMATION
  Report Type: 
  Country: None (occurrence: None)
  Receive Date: 20081222
  Receipt Date: 20081219
  Transmission Date: 20090506
  Serious: Yes (Death, Other)
  Sender: FDA-Public Use
  Company Number: GB-WYE-G02558408

PATIENT
  Age: 74 Year
  Sex: Male

DRUGS (8)
  1. IBUPROFEN TABLETS [Suspect]
     Dosage: 400 MG (FREQUENCY UNKNOWN)
     Route: 048
  2. ASPIRIN [Suspect]
     Route: 048
  3. LEVOTHYROXINE SODIUM [Concomitant]
     Dosage: UNKNOWN
  4. PERINDOPRIL [Suspect]
     Route: 048
  5. SIMVASTATIN [Suspect]
     Dosage: UNKNOWN
     Route: 048
  6. AMOXICILLIN [Concomitant]
  7. AMLODIPINE [Suspect]
     Route: 048
  8. OMEPRAZOLE [Suspect]
     Route: 048

REACTIONS (16)
  - ACUTE RESPIRATORY DISTRESS SYNDROME [None]
  - ALVEOLITIS [None]
  - ANOREXIA [None]
  - COUGH [None]
  - DERMATOMYOSITIS [None]
  - DRUG ERUPTION [None]
  - HAEMOPTYSIS [None]
  - LOWER RESPIRATORY TRACT INFECTION [None]
  - MUSCULAR WEAKNESS [None]
  - OROPHARYNGEAL PAIN [None]
  - RASH [None]
  - RENAL FAILURE ACUTE [None]
  - RENAL TUBULAR NECROSIS [None]
  - RESPIRATORY FAILURE [None]
  - VASCULITIS [None]
  - WEIGHT DECREASED [None]
